FAERS Safety Report 10165251 (Version 2)
Quarter: 2014Q4

REPORT INFORMATION
  Report Type: Spontaneous
  Country: US (occurrence: US)
  Receive Date: 20140510
  Receipt Date: 20141205
  Transmission Date: 20150528
  Serious: No
  Sender: FDA-Public Use
  Company Number: US-BRISTOL-MYERS SQUIBB COMPANY-20353116

PATIENT
  Age: 64 Year
  Sex: Male
  Weight: 122.45 kg

DRUGS (1)
  1. BYDUREON [Suspect]
     Active Substance: EXENATIDE
     Indication: TYPE 2 DIABETES MELLITUS
     Dosage: BAT.NO-73907,EXP.DT-30-JUN-2016
     Route: 058

REACTIONS (1)
  - Injection site mass [Unknown]
